FAERS Safety Report 5174391-0 (Version None)
Quarter: 2006Q4

REPORT INFORMATION
  Report Type: 
  Country: None (occurrence: None)
  Receive Date: 20061214
  Receipt Date: 20060907
  Transmission Date: 20070319
  Serious: No
  Sender: FDA-Public Use
  Company Number: US-ELI_LILLY_AND_COMPANY-US200609001949

PATIENT
  Sex: Male

DRUGS (1)
  1. HUMAN INSULIN (RDNA ORIGIN) [Suspect]
     Indication: DIABETES MELLITUS

REACTIONS (1)
  - BLOOD GLUCOSE DECREASED [None]
